FAERS Safety Report 23225916 (Version 1)
Quarter: 2023Q4

REPORT INFORMATION
  Report Type: Report from Study
  Country: NL (occurrence: NL)
  Receive Date: 20231124
  Receipt Date: 20231124
  Transmission Date: 20240109
  Serious: Yes (Hospitalization, Other)
  Sender: FDA-Public Use
  Company Number: NL-ABBVIE-5480287

PATIENT
  Age: 48 Year
  Sex: Female

DRUGS (32)
  1. VEDOLIZUMAB [Suspect]
     Active Substance: VEDOLIZUMAB
     Indication: Crohn^s disease
     Dosage: UNK
     Route: 065
     Dates: start: 20150318, end: 20160611
  2. VEDOLIZUMAB [Suspect]
     Active Substance: VEDOLIZUMAB
     Indication: Colitis
     Dosage: 300 MILLIGRAM
     Route: 065
     Dates: start: 20220520, end: 20230919
  3. PURINETHOL [Suspect]
     Active Substance: MERCAPTOPURINE
     Indication: Product used for unknown indication
     Dosage: 50 MILLIGRAM, QD
     Route: 065
     Dates: start: 20160930, end: 20161214
  4. PURINETHOL [Suspect]
     Active Substance: MERCAPTOPURINE
     Dosage: 75 MILLIGRAM, QD
     Route: 065
     Dates: start: 201310, end: 2014
  5. STELARA [Suspect]
     Active Substance: USTEKINUMAB
     Indication: Product used for unknown indication
     Dosage: 290 MILLIGRAM
     Route: 065
     Dates: start: 20170609
  6. STELARA [Suspect]
     Active Substance: USTEKINUMAB
     Dosage: 90 MILLIGRAM
     Route: 065
  7. STELARA [Suspect]
     Active Substance: USTEKINUMAB
     Dosage: 90 MILLIGRAM
     Route: 065
     Dates: start: 20170804, end: 20171208
  8. HUMIRA [Suspect]
     Active Substance: ADALIMUMAB
     Indication: Crohn^s disease
     Dosage: 160 MILLIGRAM
     Route: 065
     Dates: start: 201211
  9. HUMIRA [Suspect]
     Active Substance: ADALIMUMAB
     Dosage: 40 MILLIGRAM, Q2WEEKS
     Route: 065
     Dates: end: 20130412
  10. HUMIRA [Suspect]
     Active Substance: ADALIMUMAB
     Dosage: 80 MILLIGRAM
     Route: 065
  11. AZATHIOPRINE [Suspect]
     Active Substance: AZATHIOPRINE
     Indication: Crohn^s disease
     Dosage: UNK
     Route: 065
     Dates: start: 2009, end: 20130412
  12. AZATHIOPRINE [Suspect]
     Active Substance: AZATHIOPRINE
     Dosage: 200 MILLIGRAM
     Route: 065
     Dates: start: 2020
  13. PREDNISONE [Concomitant]
     Active Substance: PREDNISONE
     Indication: Product used for unknown indication
     Dosage: UNK
     Dates: start: 2015
  14. PREDNISONE [Concomitant]
     Active Substance: PREDNISONE
     Dosage: 40 MILLIGRAM
     Dates: start: 201810
  15. PREDNISONE [Concomitant]
     Active Substance: PREDNISONE
     Dosage: 20 MILLIGRAM
     Dates: start: 2018
  16. PREDNISONE [Concomitant]
     Active Substance: PREDNISONE
     Dosage: 10 MILLIGRAM
     Dates: start: 2020
  17. ZINACEF [Concomitant]
     Active Substance: CEFUROXIME SODIUM
     Indication: Product used for unknown indication
     Dosage: UNK
  18. ENTOCORT [Concomitant]
     Active Substance: BUDESONIDE
     Indication: Product used for unknown indication
     Dosage: 6 MILLIGRAM, QD
  19. PREDNISOLONE [Concomitant]
     Active Substance: PREDNISOLONE
     Indication: Product used for unknown indication
     Dosage: 20 MILLIGRAM, QD
     Dates: start: 20231011
  20. PREDNISOLONE [Concomitant]
     Active Substance: PREDNISOLONE
     Dosage: UNK
  21. XYZAL [Concomitant]
     Active Substance: LEVOCETIRIZINE DIHYDROCHLORIDE
     Indication: Product used for unknown indication
     Dosage: 5 MILLIGRAM
  22. CALCIUM\CHOLECALCIFEROL [Concomitant]
     Active Substance: CALCIUM\CHOLECALCIFEROL
     Indication: Product used for unknown indication
     Dosage: UNK
     Dates: start: 202310
  23. CIPROFLOXACIN HYDROCHLORIDE [Concomitant]
     Active Substance: CIPROFLOXACIN HYDROCHLORIDE
     Indication: Product used for unknown indication
     Dosage: UNK
     Dates: start: 2015
  24. HYDROCORTISONE [Concomitant]
     Active Substance: HYDROCORTISONE
     Indication: Product used for unknown indication
     Dosage: 250 MILLIGRAM
     Route: 065
     Dates: start: 20150318
  25. THIOGUANINE ANHYDROUS [Concomitant]
     Active Substance: THIOGUANINE ANHYDROUS
     Indication: Product used for unknown indication
     Dosage: 20 MILLIGRAM, QD
     Dates: start: 20161219
  26. PLAQUENIL [Concomitant]
     Active Substance: HYDROXYCHLOROQUINE SULFATE
     Indication: Systemic lupus erythematosus
     Dosage: UNK
  27. ALLOPURINOL [Concomitant]
     Active Substance: ALLOPURINOL
     Indication: Product used for unknown indication
     Dosage: 100 MILLIGRAM
  28. METHOTREXATE [Concomitant]
     Active Substance: METHOTREXATE
     Indication: Product used for unknown indication
     Dosage: UNK
     Dates: start: 2015, end: 20160829
  29. MESALAMINE [Concomitant]
     Active Substance: MESALAMINE
     Indication: Product used for unknown indication
     Dosage: 3 GRAM, QD
     Dates: start: 201310, end: 2014
  30. CLEMASTINE FUMARATE [Concomitant]
     Active Substance: CLEMASTINE FUMARATE
     Indication: Product used for unknown indication
     Dosage: 2 MILLIGRAM
     Dates: start: 20150318
  31. TACROLIMUS [Concomitant]
     Active Substance: TACROLIMUS
     Indication: Product used for unknown indication
     Dosage: UNK
  32. METRONIDAZOLE [Concomitant]
     Active Substance: METRONIDAZOLE
     Indication: Product used for unknown indication
     Dosage: UNK
     Dates: start: 2010

REACTIONS (62)
  - Crohn^s disease [Unknown]
  - Stoma closure [Unknown]
  - Lupus-like syndrome [Unknown]
  - Anastomotic ulcer [Unknown]
  - Pulmonary embolism [Unknown]
  - Bauhin^s valve syndrome [Unknown]
  - Pleural effusion [Unknown]
  - Liver function test abnormal [Unknown]
  - Ileal stenosis [Unknown]
  - Basal cell carcinoma [Unknown]
  - Pneumonia [Unknown]
  - Haemangioma of liver [Unknown]
  - Therapeutic product effect incomplete [Unknown]
  - Diarrhoea [Unknown]
  - Eye disorder [Unknown]
  - Ileus [Unknown]
  - Terminal ileitis [Unknown]
  - Histone antibody positive [Unknown]
  - Carpal tunnel syndrome [Unknown]
  - Dry mouth [Unknown]
  - Large intestine erosion [Unknown]
  - Gastrointestinal stenosis [Unknown]
  - Peripheral swelling [Unknown]
  - Gastrointestinal ulcer [Unknown]
  - Dry eye [Unknown]
  - Drug level decreased [Recovered/Resolved]
  - Drug intolerance [Unknown]
  - Ileal ulcer [Unknown]
  - Arthropathy [Unknown]
  - Sensitive skin [Unknown]
  - Dry skin [Unknown]
  - Gastrointestinal disorder [Unknown]
  - Hepatic enzyme abnormal [Unknown]
  - Stenosis [Unknown]
  - Hypoaesthesia [Unknown]
  - Muscle rigidity [Unknown]
  - Colitis [Unknown]
  - Ileal ulcer [Unknown]
  - Limb discomfort [Unknown]
  - Aphthous ulcer [Unknown]
  - Musculoskeletal disorder [Unknown]
  - Large intestinal ulcer [Unknown]
  - Sjogren^s syndrome [Unknown]
  - Pain [Unknown]
  - Enteral nutrition [Unknown]
  - Tendon disorder [Not Recovered/Not Resolved]
  - Drug ineffective [Unknown]
  - Abdominal pain upper [Unknown]
  - Abdominal pain [Unknown]
  - Discomfort [Unknown]
  - Hot flush [Unknown]
  - Nasal congestion [Unknown]
  - Chills [Unknown]
  - Arthralgia [Not Recovered/Not Resolved]
  - Rash [Unknown]
  - Nasopharyngitis [Unknown]
  - Headache [Unknown]
  - Pyrexia [Unknown]
  - Nausea [Unknown]
  - Influenza [Unknown]
  - Fatigue [Unknown]
  - Oropharyngeal pain [Unknown]
